FAERS Safety Report 5821389-2 (Version None)
Quarter: 2008Q3

REPORT INFORMATION
  Report Type: 
  Country: None (occurrence: None)
  Receive Date: 20080722
  Receipt Date: 20080708
  Transmission Date: 20090109
  Serious: Yes (Death)
  Sender: FDA-Public Use
  Company Number: 2008018189

PATIENT
  Age: 55 Year
  Sex: Male

DRUGS (8)
  1. DIPHENHYDRAMINE HCL [Suspect]
  2. BUTALBITAL [Suspect]
     Dosage: ORAL
     Route: 048
  3. PENTOBARBITAL CAP [Suspect]
     Dosage: ORAL
     Route: 048
  4. CHLORPHENIRAMINE MALEATE [Suspect]
  5. ETHANOL (ETHANOL) [Suspect]
     Dosage: ORAL
     Route: 048
  6. PHENYLPROPANOLAMINE HCL [Suspect]
  7. QUININE (QUININE) [Suspect]
  8. ACETAMINOPHEN [Suspect]

REACTIONS (2)
  - ACCIDENT [None]
  - ALCOHOL USE [None]
